FAERS Safety Report 16105547 (Version 1)
Quarter: 2019Q1

REPORT INFORMATION
  Report Type: Spontaneous
  Country: US (occurrence: US)
  Receive Date: 20190322
  Receipt Date: 20190322
  Transmission Date: 20190418
  Serious: No
  Sender: FDA-Public Use
  Company Number: US-BAYER-2019-056631

PATIENT
  Age: 64 Year
  Sex: Female
  Weight: 64 kg

DRUGS (2)
  1. MIRALAX [Suspect]
     Active Substance: POLYETHYLENE GLYCOL 3350
     Indication: GASTROINTESTINAL DISORDER
     Dosage: ;1 CAP FULL IN 4-8 OZ OF BEVERAGE DOSE
     Route: 048
     Dates: start: 20190316
  2. CHOLESTEROL CARE [Concomitant]

REACTIONS (2)
  - Poor quality product administered [Unknown]
  - Product taste abnormal [Unknown]
